FAERS Safety Report 20695084 (Version 1)
Quarter: 2022Q2

REPORT INFORMATION
  Report Type: Spontaneous
  Country: IT (occurrence: IT)
  Receive Date: 20220411
  Receipt Date: 20220411
  Transmission Date: 20220720
  Serious: Yes (Other)
  Sender: FDA-Public Use
  Company Number: IT-KEDRION-2022-000007

PATIENT
  Age: 74 Year
  Sex: Male

DRUGS (9)
  1. ANTIHEMOPHILIC FACTOR HUMAN [Suspect]
     Active Substance: ANTIHEMOPHILIC FACTOR HUMAN
     Indication: Factor VIII deficiency
     Dosage: UNK
     Route: 065
  2. ANTIHEMOPHILIC FACTOR HUMAN [Suspect]
     Active Substance: ANTIHEMOPHILIC FACTOR HUMAN
     Indication: Factor VIII deficiency
  3. EMICIZUMAB [Concomitant]
     Active Substance: EMICIZUMAB
     Indication: Prophylaxis
     Dosage: 3 MILLIGRAM/KILOGRAM, 1/WEEK
     Route: 065
     Dates: start: 202102
  4. EMICIZUMAB [Concomitant]
     Active Substance: EMICIZUMAB
     Dosage: 1.5 MILLIGRAM/KILOGRAM, 1/WEEK
     Route: 065
     Dates: start: 202102
  5. EMICIZUMAB [Concomitant]
     Active Substance: EMICIZUMAB
     Dosage: 3 MILLIGRAM/KILOGRAM, Q2WEEKS
     Route: 065
  6. EMICIZUMAB [Concomitant]
     Active Substance: EMICIZUMAB
     Dosage: 6 MILLIGRAM/KILOGRAM, Q4WEEKS
     Route: 065
  7. EMICIZUMAB [Concomitant]
     Active Substance: EMICIZUMAB
     Dosage: 1.5 MILLIGRAM/KILOGRAM, 1/WEEK
     Route: 065
  8. EMICIZUMAB [Concomitant]
     Active Substance: EMICIZUMAB
     Dosage: 1.7 MILLIGRAM/KILOGRAM, Q4WEEKS
     Route: 065
  9. EMICIZUMAB [Concomitant]
     Active Substance: EMICIZUMAB
     Dosage: 1.9 MILLIGRAM/KILOGRAM, Q4WEEKS
     Route: 065

REACTIONS (1)
  - Anti factor VIII antibody positive [Recovered/Resolved]

NARRATIVE: CASE EVENT DATE: 20000701
